FAERS Safety Report 8985091 (Version 1)
Quarter: 2012Q4

REPORT INFORMATION
  Report Type: 
  Country: CA (occurrence: CA)
  Receive Date: 20121225
  Receipt Date: 20121225
  Transmission Date: 20130627
  Serious: Yes (Other)
  Sender: FDA-Public Use
  Company Number: CA-009507513-1212CAN008447

PATIENT
  Sex: Male
  Weight: 79 kg

DRUGS (5)
  1. VICTRELIS [Suspect]
     Indication: CHRONIC HEPATITIS C
     Dosage: 800 mg, tid
     Route: 048
     Dates: start: 20121101
  2. PEGETRON [Suspect]
     Indication: CHRONIC HEPATITIS C
     Dosage: 120 Microgram, UNK
     Route: 058
     Dates: start: 20121101
  3. PEGETRON [Suspect]
     Dosage: 600 mg, qd
     Route: 048
     Dates: start: 20121101
  4. PEGETRON [Suspect]
     Dosage: 400 mg, qd
     Route: 048
     Dates: start: 20121101
  5. ESCITALOPRAM [Concomitant]
     Indication: DEPRESSION
     Dosage: 30 mg, qd
     Route: 048
     Dates: start: 20121211

REACTIONS (1)
  - Supraventricular tachycardia [Recovering/Resolving]
